FAERS Safety Report 22872726 (Version 5)
Quarter: 2024Q4

REPORT INFORMATION
  Report Type: Spontaneous
  Country: US (occurrence: US)
  Receive Date: 20230828
  Receipt Date: 20241004
  Transmission Date: 20250114
  Serious: No
  Sender: SANOFI AVENTIS
  Company Number: US-SA-SAC20230825000217

PATIENT
  Age: 60 Year
  Sex: Female

DRUGS (1)
  1. KEVZARA [Suspect]
     Active Substance: SARILUMAB
     Indication: Polymyalgia rheumatica
     Dosage: 200MG, QOW (EVERY 14 DAYS)
     Route: 058
     Dates: start: 202305, end: 2023

REACTIONS (4)
  - White blood cell count decreased [Recovered/Resolved]
  - White blood cell count decreased [Unknown]
  - Rebound effect [Unknown]
  - Injection site reaction [Unknown]

NARRATIVE: CASE EVENT DATE: 20230101
